FAERS Safety Report 6578750-0 (Version None)
Quarter: 2010Q1

REPORT INFORMATION
  Report Type: 
  Country: None (occurrence: None)
  Receive Date: 20100202
  Receipt Date: 20100118
  Transmission Date: 20100710
  Serious: Yes (Death)
  Sender: FDA-Public Use
  Company Number: 2010S1000051

PATIENT
  Age: 56 Year
  Sex: Male

DRUGS (13)
  1. ROXICODONE [Suspect]
     Dosage: PO
     Route: 048
     Dates: end: 20080101
  2. PHENYTOIN [Suspect]
     Dosage: PO
     Route: 048
     Dates: end: 20080101
  3. PHENOBARBITAL TAB [Suspect]
     Dosage: PO
     Route: 048
     Dates: end: 20080101
  4. QUETIAPINE [Suspect]
     Dosage: PO
     Route: 048
     Dates: end: 20080101
  5. TRAZODONE HCL [Suspect]
     Dosage: PO
     Route: 048
     Dates: end: 20080101
  6. ESCITALOPRAM [Suspect]
     Dosage: PO
     Route: 048
     Dates: end: 20080101
  7. EMTRICITABINE/TENOFOVIR DISOPROXIL FUMARATE [Suspect]
     Dosage: PO
     Route: 048
     Dates: end: 20080101
  8. METHYLPHENIDATE [Suspect]
     Dosage: PO
     Route: 048
     Dates: end: 20080101
  9. METFORMIN [Suspect]
     Dosage: PO
     Route: 048
     Dates: end: 20080101
  10. ZOLPIDEM [Suspect]
     Dosage: PO
     Route: 048
     Dates: end: 20080101
  11. ONDANSETRON [Suspect]
     Dosage: PO
     Route: 048
     Dates: end: 20080101
  12. PREGABALIN [Suspect]
     Dosage: PO
     Route: 048
     Dates: end: 20080101
  13. METOCLOPRAMIDE HYDROCHLORIDE [Suspect]
     Dosage: PO
     Route: 048
     Dates: end: 20080101

REACTIONS (1)
  - COMPLETED SUICIDE [None]
